FAERS Safety Report 8960774 (Version 1)
Quarter: 2012Q4

REPORT INFORMATION
  Report Type: 
  Country: US (occurrence: US)
  Receive Date: 20121213
  Receipt Date: 20121213
  Transmission Date: 20130627
  Serious: No
  Sender: FDA-Public Use
  Company Number: US-009507513-1212USA004331

PATIENT
  Age: 62 Year
  Sex: Male

DRUGS (2)
  1. JANUMET XR [Suspect]
     Indication: DIABETES MELLITUS
     Dosage: 50/1000mg
  2. JANUMET XR [Suspect]
     Dosage: 100/1000mg

REACTIONS (1)
  - Blood glucose increased [Not Recovered/Not Resolved]
